FAERS Safety Report 23531655 (Version 2)
Quarter: 2024Q2

REPORT INFORMATION
  Report Type: Spontaneous
  Country: DE (occurrence: DE)
  Receive Date: 20240216
  Receipt Date: 20240531
  Transmission Date: 20240715
  Serious: Yes (Other)
  Sender: FDA-Public Use
  Company Number: None

PATIENT
  Age: 51 Year
  Sex: Male
  Weight: 118 kg

DRUGS (20)
  1. CANDESARTAN [Interacting]
     Active Substance: CANDESARTAN
     Indication: Hypertension
     Dosage: MORNING 8MG, AFTERNOON 4MG
     Route: 065
  2. NEBIVOLOL [Interacting]
     Active Substance: NEBIVOLOL
     Indication: Hypertension
     Dosage: 2.5MG MORNING AND NIGHT
     Route: 065
  3. SILDENAFIL [Interacting]
     Active Substance: SILDENAFIL
     Indication: Product used for unknown indication
     Dosage: UNKNOWN
     Route: 065
  4. ABILIFY [Interacting]
     Active Substance: ARIPIPRAZOLE
     Indication: Product used for unknown indication
     Dosage: UNKNOWN
     Route: 065
  5. PROMETHAZINE HYDROCHLORIDE [Interacting]
     Active Substance: PROMETHAZINE HYDROCHLORIDE
     Indication: Product used for unknown indication
     Route: 065
  6. BROMAZEPAM [Interacting]
     Active Substance: BROMAZEPAM
     Indication: Sedation
     Dosage: 3MG IF NECESSARY FOR SEDATION/ANXIETY
     Route: 065
  7. FLUPENTIXOL [Interacting]
     Active Substance: FLUPENTIXOL
     Indication: Psychotic disorder
     Dosage: MORNING: 5MG; EVENING: 6 MG; NIGHT: 2MG
     Route: 065
  8. CLOZAPINE [Interacting]
     Active Substance: CLOZAPINE
     Indication: Product used for unknown indication
     Dosage: UNKNOWN
     Route: 065
  9. MELATONIN [Interacting]
     Active Substance: MELATONIN
     Indication: Product used for unknown indication
     Dosage: UNKNOWN
     Route: 065
  10. NAPROXEN [Interacting]
     Active Substance: NAPROXEN
     Indication: Anxiety
     Dosage: 500MG IF NECESSARY FOR KNEE PAIN
     Route: 065
  11. PROPRANOLOL [Interacting]
     Active Substance: PROPRANOLOL HYDROCHLORIDE
     Indication: Tremor
     Dosage: UNKNOWN
     Route: 065
  12. RABEPRAZOLE [Interacting]
     Active Substance: RABEPRAZOLE
     Indication: Gastric pH increased
     Dosage: MORNING 20MG
     Route: 065
  13. RAMIPRIL [Interacting]
     Active Substance: RAMIPRIL
     Indication: Hypertension
     Dosage: UNKNOWN
     Route: 065
  14. CARIPRAZINE [Interacting]
     Active Substance: CARIPRAZINE
     Indication: Product used for unknown indication
     Dosage: UNKNOWN
     Route: 065
  15. RISPERDAL [Interacting]
     Active Substance: RISPERIDONE
     Indication: Psychotic disorder
     Dosage: MORNING 4MG, NIGHT 5MG
     Route: 065
  16. SEROQUEL [Interacting]
     Active Substance: QUETIAPINE FUMARATE
     Indication: Insomnia
     Dosage: 25-50MG IF NECESSARY TO CALM DOWN
     Route: 065
  17. TAVOR (LORAZEPAM) [Interacting]
     Active Substance: LORAZEPAM
     Indication: Anxiety
     Dosage: 1MG IF NECESSARY FOR SEDATION/ANXIETY
     Route: 065
  18. CHLORPROTHIXENE [Interacting]
     Active Substance: CHLORPROTHIXENE
     Indication: Insomnia
     Dosage: 100MG AT BEDTIME FOR SLEEP
     Route: 065
  19. ZELDOX [Interacting]
     Active Substance: ZIPRASIDONE
     Indication: Product used for unknown indication
     Dosage: UNKNOWN
     Route: 065
  20. ZYPREXA [Interacting]
     Active Substance: OLANZAPINE
     Indication: Product used for unknown indication
     Dosage: UNKNOWN
     Route: 065

REACTIONS (11)
  - Somnolence [Unknown]
  - Drug interaction [Unknown]
  - Parkinsonism [Unknown]
  - Suicidal ideation [Unknown]
  - Flatulence [Unknown]
  - Blood pressure increased [Unknown]
  - Tremor [Unknown]
  - Dizziness [Unknown]
  - Condition aggravated [Unknown]
  - Impaired work ability [Unknown]
  - Brain fog [Unknown]
